FAERS Safety Report 5272732-7 (Version None)
Quarter: 2007Q1

REPORT INFORMATION
  Report Type: 
  Country: None (occurrence: None)
  Receive Date: 20070322
  Receipt Date: 20070314
  Transmission Date: 20070707
  Serious: Yes (Death, Hospitalization)
  Sender: FDA-Public Use
  Company Number: GB-ROCHE-482741

PATIENT
  Age: 72 Year
  Sex: Male
  Weight: 62 kg

DRUGS (1)
  1. XELODA [Suspect]
     Indication: COLON CANCER
     Dosage: DRUG ALSO REPORTED TO BE INDICATED FOR GRADE 5 SYSTEMIC LUPUS ERYTHEMATOSUS.
     Route: 048
     Dates: start: 20061221, end: 20070131

REACTIONS (3)
  - DIARRHOEA [None]
  - RENAL FAILURE [None]
  - VOMITING [None]
